FAERS Safety Report 5636956-9 (Version None)
Quarter: 2008Q1

REPORT INFORMATION
  Report Type: 
  Country: None (occurrence: None)
  Receive Date: 20080225
  Receipt Date: 20070201
  Transmission Date: 20080703
  Serious: No
  Sender: FDA-Public Use
  Company Number: US-BRISTOL-MYERS SQUIBB COMPANY-13665096

PATIENT
  Age: 69 Year
  Sex: Male
  Weight: 75 kg

DRUGS (4)
  1. METFORMIN HCL [Suspect]
     Indication: DIABETES MELLITUS
     Dates: start: 20070101
  2. LIPITOR [Concomitant]
  3. ACCUPRIL [Concomitant]
  4. LASIX [Concomitant]

REACTIONS (1)
  - BLOOD GLUCOSE INCREASED [None]
